FAERS Safety Report 7389571-3 (Version None)
Quarter: 2011Q2

REPORT INFORMATION
  Report Type: 
  Country: None (occurrence: None)
  Receive Date: 20110401
  Receipt Date: 20110329
  Transmission Date: 20111010
  Serious: Yes (Life-Threatening, Hospitalization, Other)
  Sender: FDA-Public Use
  Company Number: PHHY2011IT24035

PATIENT
  Sex: Female

DRUGS (1)
  1. AFINITOR [Suspect]
     Indication: RENAL CELL CARCINOMA
     Dosage: 10 MG, DAILY
     Route: 048
     Dates: start: 20110201

REACTIONS (4)
  - TONGUE OEDEMA [None]
  - PHARYNGEAL OEDEMA [None]
  - RESPIRATORY TRACT OEDEMA [None]
  - DYSPNOEA [None]
